FAERS Safety Report 19650760 (Version 1)
Quarter: 2021Q3

REPORT INFORMATION
  Report Type: Spontaneous
  Country: US (occurrence: US)
  Receive Date: 20210731
  Receipt Date: 20210731
  Transmission Date: 20211014
  Serious: Yes (Hospitalization)
  Sender: FDA-Public Use
  Company Number: None

PATIENT
  Age: 70 Year
  Sex: Female

DRUGS (13)
  1. CARVEDILOL. [Concomitant]
     Active Substance: CARVEDILOL
  2. OMEPRAZOLE. [Concomitant]
     Active Substance: OMEPRAZOLE
  3. PREDNISONE. [Concomitant]
     Active Substance: PREDNISONE
  4. PREDNISOLONE ODT [Concomitant]
  5. NOVOLOG [Concomitant]
     Active Substance: INSULIN ASPART
  6. LOSARTAN POT [Concomitant]
     Active Substance: LOSARTAN POTASSIUM
  7. TORSEMIDE. [Concomitant]
     Active Substance: TORSEMIDE
  8. MYCOPHENOLIC 360 MG DR TAB [Suspect]
     Active Substance: MYCOPHENOLIC ACID
     Indication: RENAL TRANSPLANT
     Route: 048
     Dates: start: 20171013
  9. TACROLIMUS 1MG CAP [Suspect]
     Active Substance: TACROLIMUS
     Indication: LIVER TRANSPLANT
     Dosage: 3 CAPS (3MG) BID PO
     Route: 048
     Dates: start: 20171013
  10. ATORVASTATIN [Concomitant]
     Active Substance: ATORVASTATIN
  11. CALCIUM [Concomitant]
     Active Substance: CALCIUM
  12. METFORMIN ER [Concomitant]
     Active Substance: METFORMIN HYDROCHLORIDE
  13. ALLOPURINOL. [Concomitant]
     Active Substance: ALLOPURINOL

REACTIONS (1)
  - Back pain [None]

NARRATIVE: CASE EVENT DATE: 20210716
